FAERS Safety Report 9711142 (Version 3)
Quarter: 2014Q2

REPORT INFORMATION
  Report Type: Spontaneous
  Country: US (occurrence: US)
  Receive Date: 20131126
  Receipt Date: 20140510
  Transmission Date: 20141212
  Serious: Yes (Other)
  Sender: FDA-Public Use
  Company Number: US-BRISTOL-MYERS SQUIBB COMPANY-19159839

PATIENT
  Age: 71 Year
  Sex: Male

DRUGS (9)
  1. BYETTA [Suspect]
     Dates: start: 201302, end: 2013
  2. LANTUS [Concomitant]
  3. LIPITOR [Concomitant]
  4. LISINOPRIL + HCTZ [Concomitant]
  5. GLIMEPIRIDE [Concomitant]
  6. METOPROLOL [Concomitant]
  7. NIACIN [Concomitant]
  8. ASPIRIN [Concomitant]
  9. COQ10 [Concomitant]

REACTIONS (1)
  - Pancreatitis [Unknown]
